FAERS Safety Report 8865778 (Version 2)
Quarter: 2013Q3

REPORT INFORMATION
  Report Type: Spontaneous
  Country: US (occurrence: US)
  Receive Date: 20121024
  Receipt Date: 20130930
  Transmission Date: 20140515
  Serious: No
  Sender: FDA-Public Use
  Company Number: US-AMGEN-USASP2011066639

PATIENT
  Age: 69 Year
  Sex: Male
  Weight: 94.79 kg

DRUGS (12)
  1. ENBREL [Suspect]
     Indication: RHEUMATOID ARTHRITIS
     Dosage: 50 MG, QWK
     Route: 058
     Dates: start: 20051001
  2. METHOTREXATE [Concomitant]
     Dosage: 2.5 MG, UNK
  3. DIAZEPAM [Concomitant]
     Dosage: 2 MG, UNK
  4. ASPIRIN (E.C.) [Concomitant]
     Dosage: 81 MG, UNK
  5. COUMADIN                           /00014802/ [Concomitant]
     Dosage: 1 MG, UNK
  6. ADVICOR [Concomitant]
     Dosage: 750-20, MG, UNK
  7. LISINOPRIL [Concomitant]
     Dosage: 2.5 MG, UNK
  8. FISH OIL [Concomitant]
     Dosage: UNK
  9. NIASPAN ER [Concomitant]
     Dosage: 1000 UNK, UNK
  10. DILTIAZEM CD [Concomitant]
     Dosage: 120 MG, UNK
  11. METOPROLOL [Concomitant]
     Dosage: 50 MG, UNK
  12. PREVACID [Concomitant]
     Dosage: 30 MG, UNK

REACTIONS (7)
  - Anxiety [Recovered/Resolved]
  - Rheumatoid arthritis [Recovered/Resolved]
  - Back pain [Not Recovered/Not Resolved]
  - Arthropod bite [Recovered/Resolved]
  - Platelet count decreased [Unknown]
  - Toothache [Recovered/Resolved]
  - Anaemia [Unknown]
